FAERS Safety Report 6167793-7 (Version None)
Quarter: 2009Q2

REPORT INFORMATION
  Report Type: 
  Country: None (occurrence: None)
  Receive Date: 20090427
  Receipt Date: 20090415
  Transmission Date: 20091009
  Serious: Yes (Other)
  Sender: FDA-Public Use
  Company Number: ES-CELGENEUS-144-20484-09041527

PATIENT
  Sex: Female

DRUGS (1)
  1. INNOHEP [Suspect]
     Route: 065

REACTIONS (7)
  - DERMATITIS ALLERGIC [None]
  - HAEMATOMA [None]
  - INTRA-ABDOMINAL HAEMORRHAGE [None]
  - INTRA-UTERINE DEATH [None]
  - POSTPARTUM HAEMORRHAGE [None]
  - PREMATURE LABOUR [None]
  - SKIN DISCOLOURATION [None]
